FAERS Safety Report 20730484 (Version 1)
Quarter: 2022Q2

REPORT INFORMATION
  Report Type: Spontaneous
  Country: US (occurrence: None)
  Receive Date: 20220419
  Receipt Date: 20220419
  Transmission Date: 20220721
  Serious: No
  Sender: FDA-Public Use
  Company Number: None

PATIENT
  Age: 29 Year
  Sex: Male
  Weight: 65.25 kg

DRUGS (5)
  1. LIDOCAINE\METRONIDAZOLE\NIFEDIPINE [Suspect]
     Active Substance: LIDOCAINE\METRONIDAZOLE\NIFEDIPINE
     Indication: Fistulotomy
     Dosage: OTHER QUANTITY : 1 DROP(S);?FREQUENCY : 4 TIMES A DAY;?
     Route: 061
     Dates: start: 20220324, end: 20220416
  2. VitaminIQ Men^s Whole Food Multivitamin [Concomitant]
  3. Nordic Naturals ProOmega Soylent Drink Creamy Chocolate [Concomitant]
  4. Soylent Complete Protein [Concomitant]
  5. MyProtein smooth chocolate whey protein [Concomitant]

REACTIONS (10)
  - Product use issue [None]
  - Procedural pain [None]
  - Application site swelling [None]
  - Limb discomfort [None]
  - Bedridden [None]
  - Wound abscess [None]
  - Secretion discharge [None]
  - Application site pain [None]
  - Blood calcium increased [None]
  - Systemic inflammatory response syndrome [None]

NARRATIVE: CASE EVENT DATE: 20220416
